FAERS Safety Report 9192862 (Version 1)
Quarter: 2013Q1

REPORT INFORMATION
  Report Type: Spontaneous
  Country: GB (occurrence: GB)
  Receive Date: 20130327
  Receipt Date: 20130327
  Transmission Date: 20140127
  Serious: Yes (Life-Threatening)
  Sender: FDA-Public Use
  Company Number: PHHY2013GB029312

PATIENT
  Age: 70 Year
  Sex: Male
  Weight: 88.9 kg

DRUGS (19)
  1. BENZYLPENICILLIN [Suspect]
     Dates: start: 20130313
  2. PHENOXYMETHYLPENICILLIN [Suspect]
     Dates: start: 20130313
  3. DERMOL [Concomitant]
     Dates: start: 20121126, end: 20121224
  4. DONEPEZIL HYDROCHLORIDE [Concomitant]
     Dates: start: 20121126
  5. MIRTAZAPINE [Concomitant]
     Dates: start: 20121126
  6. PERINDOPRIL ERBUMINE [Concomitant]
     Dates: start: 20121126
  7. VIAZEM XL [Concomitant]
     Dates: start: 20121126
  8. CLOTRIMAZOLE [Concomitant]
     Dates: start: 20130301, end: 20130313
  9. CLOPIDOGREL [Concomitant]
     Dates: start: 20130306
  10. QVAR [Concomitant]
     Dates: start: 20130306
  11. SALAMOL (SALBUTAMOL SULFATE) [Concomitant]
     Dates: start: 20130306
  12. ZEROBASE//PARAFFIN, LIQUID [Concomitant]
     Dates: start: 20130306
  13. CHLORAMPHENICOL [Concomitant]
     Dates: start: 20130306
  14. HALOPERIDOL [Concomitant]
     Dates: start: 20130307
  15. AQUEOUS CREAM [Concomitant]
     Dates: start: 20130311
  16. FLUCLOXACILLIN [Concomitant]
     Dates: start: 20130311
  17. ELOCON [Concomitant]
     Dates: start: 20130312
  18. TRIMOVATE [Concomitant]
     Dates: start: 20130312
  19. PREDNISOLONE [Concomitant]
     Dates: start: 20130313

REACTIONS (3)
  - Oral mucosal blistering [Recovering/Resolving]
  - Rash [Recovering/Resolving]
  - Drug hypersensitivity [Unknown]
